FAERS Safety Report 21943333 (Version 2)
Quarter: 2023Q1

REPORT INFORMATION
  Report Type: Report from Study
  Country: US (occurrence: US)
  Receive Date: 20230202
  Receipt Date: 20230207
  Transmission Date: 20230418
  Serious: Yes (Hospitalization, Other)
  Sender: FDA-Public Use
  Company Number: US-ABBVIE-4288361

PATIENT
  Age: 32 Year
  Sex: Male
  Weight: 126.09 kg

DRUGS (2)
  1. HUMIRA [Suspect]
     Active Substance: ADALIMUMAB
     Indication: Colitis ulcerative
     Route: 058
     Dates: start: 20160101, end: 202212
  2. HUMIRA [Suspect]
     Active Substance: ADALIMUMAB
     Indication: Crohn^s disease

REACTIONS (5)
  - Pain [Recovering/Resolving]
  - Crohn^s disease [Unknown]
  - Colitis [Recovering/Resolving]
  - Insomnia [Unknown]
  - Norovirus infection [Recovering/Resolving]

NARRATIVE: CASE EVENT DATE: 20221231
